FAERS Safety Report 11905670 (Version 1)
Quarter: 2016Q1

REPORT INFORMATION
  Report Type: Spontaneous
  Country: US (occurrence: None)
  Receive Date: 20160108
  Receipt Date: 20160108
  Transmission Date: 20160526
  Serious: Yes (Death, Hospitalization)
  Sender: FDA-Public Use
  Company Number: None

PATIENT
  Age: 61 Year
  Sex: Female
  Weight: 54.4 kg

DRUGS (2)
  1. CAMPTOSAR [Suspect]
     Active Substance: IRINOTECAN HYDROCHLORIDE
     Dates: end: 20151208
  2. ERBITUX [Suspect]
     Active Substance: CETUXIMAB
     Dates: end: 20151208

REACTIONS (2)
  - Bile duct obstruction [None]
  - Disease progression [None]

NARRATIVE: CASE EVENT DATE: 20151229
